FAERS Safety Report 16029434 (Version 1)
Quarter: 2019Q1

REPORT INFORMATION
  Report Type: Spontaneous
  Country: US (occurrence: US)
  Receive Date: 20190304
  Receipt Date: 20190304
  Transmission Date: 20190418
  Serious: No
  Sender: FDA-Public Use
  Company Number: US-IMPAX LABORATORIES, LLC-2018-IPXL-01514

PATIENT
  Sex: Female
  Weight: 132 kg

DRUGS (2)
  1. RYTARY [Suspect]
     Active Substance: CARBIDOPA\LEVODOPA
     Indication: PARKINSON^S DISEASE
     Dosage: 61.25/245MG, 2 CAPSULE, 4 TIMES A DAY, AND ONE CAPSULE AT 09:00PM
     Route: 048
     Dates: start: 201804, end: 2018
  2. RYTARY [Suspect]
     Active Substance: CARBIDOPA\LEVODOPA
     Dosage: 1 CAPSULE 61.25/245MG 2 CAPSULES 36.25/145 MG, TOGETHER 5 TIMES DAILY
     Route: 048
     Dates: start: 2018

REACTIONS (2)
  - Tremor [Not Recovered/Not Resolved]
  - Prescribed overdose [Unknown]
